FAERS Safety Report 18905728 (Version 4)
Quarter: 2021Q4

REPORT INFORMATION
  Report Type: Spontaneous
  Country: FR (occurrence: FR)
  Receive Date: 20210217
  Receipt Date: 20211116
  Transmission Date: 20220303
  Serious: Yes (Other)
  Sender: FDA-Public Use
  Company Number: FR-BRISTOL-MYERS SQUIBB COMPANY-BMS-2019-120908

PATIENT
  Age: 77 Year
  Sex: Male

DRUGS (2)
  1. NIVOLUMAB [Interacting]
     Active Substance: NIVOLUMAB
     Indication: Metastatic malignant melanoma
     Dosage: INITIALLY STOPPED; LATER RESTARTED
     Route: 065
  2. IMIQUIMOD [Interacting]
     Active Substance: IMIQUIMOD
     Indication: Metastatic malignant melanoma
     Dosage: 5 DAYS/WEEK
     Route: 061

REACTIONS (2)
  - Lichenoid keratosis [Recovered/Resolved]
  - Drug interaction [Recovered/Resolved]
